FAERS Safety Report 6096390-7 (Version None)
Quarter: 2009Q1

REPORT INFORMATION
  Report Type: 
  Country: None (occurrence: None)
  Receive Date: 20090227
  Receipt Date: 20081204
  Transmission Date: 20090719
  Serious: No
  Sender: FDA-Public Use
  Company Number: A0759068A

PATIENT
  Sex: Female

DRUGS (10)
  1. LAMICTAL [Suspect]
     Indication: DRUG USE FOR UNKNOWN INDICATION
     Dates: start: 20081022
  2. BENADRYL [Concomitant]
  3. CLARITIN [Concomitant]
  4. PROTONIX [Concomitant]
  5. KEPPRA [Concomitant]
  6. ZOLOFT [Concomitant]
  7. ABILIFY [Concomitant]
  8. TYLENOL [Concomitant]
  9. KLONOPIN [Concomitant]
  10. SYNTHROID [Concomitant]

REACTIONS (1)
  - DRUG DISPENSING ERROR [None]
